FAERS Safety Report 7299765-3 (Version None)
Quarter: 2011Q1

REPORT INFORMATION
  Report Type: 
  Country: None (occurrence: None)
  Receive Date: 20110209
  Receipt Date: 20110126
  Transmission Date: 20110831
  Serious: Yes (Other)
  Sender: FDA-Public Use
  Company Number: 011201

PATIENT
  Age: 10 Year
  Sex: Female

DRUGS (5)
  1. HEPARIN [Concomitant]
  2. CYCLOPHOSPHAMIDE [Concomitant]
  3. ACYCLOVIR [Concomitant]
  4. ETOPOSIDE [Concomitant]
  5. BUSULFAN [Suspect]
     Indication: STEM CELL TRANSPLANT
     Dosage: 4 MG/KG

REACTIONS (2)
  - PNEUMOCOCCAL SEPSIS [None]
  - NEUTROPENIA [None]
